FAERS Safety Report 11936891 (Version 2)
Quarter: 2016Q2

REPORT INFORMATION
  Report Type: Report from Study
  Country: US (occurrence: US)
  Receive Date: 20160121
  Receipt Date: 20160520
  Transmission Date: 20160815
  Serious: No
  Sender: FDA-Public Use
  Company Number: PHEH2014US011835

PATIENT
  Age: 12 Year
  Sex: Male

DRUGS (5)
  1. AFINITOR [Suspect]
     Active Substance: EVEROLIMUS
     Dosage: 5 MG, QD
     Route: 048
     Dates: start: 20130612
  2. VIGABATRIN [Concomitant]
     Active Substance: VIGABATRIN
     Indication: PRODUCT USED FOR UNKNOWN INDICATION
     Dosage: UNK UKN, UNK
     Route: 065
  3. AFINITOR [Suspect]
     Active Substance: EVEROLIMUS
     Indication: GANGLIOGLIOMA
     Dosage: 5 MG, QD
     Route: 048
     Dates: start: 20121222, end: 20121228
  4. AFINITOR [Suspect]
     Active Substance: EVEROLIMUS
     Dosage: 7.5 MG, QD
     Route: 048
     Dates: end: 201510
  5. DEPAKOTE [Concomitant]
     Active Substance: DIVALPROEX SODIUM
     Indication: PRODUCT USED FOR UNKNOWN INDICATION
     Route: 065

REACTIONS (10)
  - Incontinence [Unknown]
  - Lower extremity mass [Not Recovered/Not Resolved]
  - Abnormal behaviour [Not Recovered/Not Resolved]
  - Nasopharyngitis [Recovered/Resolved]
  - Erythema nodosum [Recovered/Resolved]
  - Skin infection [Recovered/Resolved]
  - Limb injury [Recovered/Resolved]
  - Inflammation [Not Recovered/Not Resolved]
  - Injury [Not Recovered/Not Resolved]
  - Somnolence [Unknown]

NARRATIVE: CASE EVENT DATE: 20140201
